FAERS Safety Report 10517909 (Version 1)
Quarter: 2014Q4

REPORT INFORMATION
  Report Type: Report from Study
  Country: IE (occurrence: IE)
  Receive Date: 20141015
  Receipt Date: 20141015
  Transmission Date: 20150528
  Serious: Yes (Death)
  Sender: FDA-Public Use
  Company Number: IE-AMGEN-IRLSL2014079078

PATIENT
  Age: 56 Year
  Sex: Female

DRUGS (8)
  1. ZOFRAN                             /00955301/ [Concomitant]
     Active Substance: ONDANSETRON HYDROCHLORIDE
     Dosage: 8 MG,  BD X 3/7 POST CHEMOTHERAPY
  2. DEXAMETHASONE. [Concomitant]
     Active Substance: DEXAMETHASONE
     Dosage: UNK PRE AND POST CHEMOTHERAPY
  3. MOVICOL                            /08437601/ [Concomitant]
     Dosage: UNK PRN
  4. CYCLIZINE [Concomitant]
     Active Substance: CYCLIZINE
     Dosage: UNK PRN
  5. ELTROXIN [Concomitant]
     Active Substance: LEVOTHYROXINE
     Dosage: 50 MG, OD
  6. NEULASTA [Suspect]
     Active Substance: PEGFILGRASTIM
     Indication: GASTRIC CANCER
     Dosage: 6 MG/0.6ML POST CHEMO EVERY 3 WEEKS
     Route: 058
     Dates: start: 20130613
  7. MOTILIUM [Concomitant]
     Active Substance: DOMPERIDONE
     Dosage: UNK PRN
  8. IMODIUM [Concomitant]
     Active Substance: LOPERAMIDE HYDROCHLORIDE
     Dosage: UNK PRN

REACTIONS (1)
  - Death [Fatal]

NARRATIVE: CASE EVENT DATE: 20140816
